FAERS Safety Report 13707292 (Version 1)
Quarter: 2017Q2

REPORT INFORMATION
  Report Type: Spontaneous
  Country: IR (occurrence: IR)
  Receive Date: 20170630
  Receipt Date: 20170630
  Transmission Date: 20170830
  Serious: Yes (Other)
  Sender: FDA-Public Use
  Company Number: IR-ABBVIE-17P-080-2024862-00

PATIENT
  Sex: Male

DRUGS (2)
  1. CLONAZEPAM. [Concomitant]
     Active Substance: CLONAZEPAM
     Indication: PRODUCT USED FOR UNKNOWN INDICATION
     Dates: start: 20170618
  2. DEPAKINE [Suspect]
     Active Substance: VALPROATE SODIUM
     Indication: TINNITUS
     Route: 048
     Dates: start: 20170618

REACTIONS (1)
  - Off label use [Unknown]
